FAERS Safety Report 10475528 (Version 4)
Quarter: 2014Q4

REPORT INFORMATION
  Report Type: Spontaneous
  Country: AU (occurrence: AU)
  Receive Date: 20140925
  Receipt Date: 20141105
  Transmission Date: 20150528
  Serious: Yes (Hospitalization)
  Sender: FDA-Public Use
  Company Number: AU-BRISTOL-MYERS SQUIBB COMPANY-21406137

PATIENT
  Age: 74 Year
  Sex: Male

DRUGS (7)
  1. ESOMEPRAZOLE [Concomitant]
     Active Substance: ESOMEPRAZOLE
  2. METOPROLOL [Concomitant]
     Active Substance: METOPROLOL
  3. YERVOY [Suspect]
     Active Substance: IPILIMUMAB
     Indication: METASTATIC MALIGNANT MELANOMA
     Dosage: LAST DOSE ON: 03SEP14.
     Dates: start: 20140813, end: 20140903
  4. ALLOPURINOL. [Concomitant]
     Active Substance: ALLOPURINOL
  5. ASPIRIN. [Concomitant]
     Active Substance: ASPIRIN
  6. TARGIN [Concomitant]
     Active Substance: NALOXONE HYDROCHLORIDE\OXYCODONE HYDROCHLORIDE
  7. AMLODIPINE [Concomitant]
     Active Substance: AMLODIPINE BESYLATE

REACTIONS (1)
  - Colitis ulcerative [Unknown]

NARRATIVE: CASE EVENT DATE: 20140908
